FAERS Safety Report 4306308-2 (Version None)
Quarter: 2004Q1

REPORT INFORMATION
  Report Type: 
  Country: None (occurrence: None)
  Receive Date: 20040225
  Receipt Date: 20030513
  Transmission Date: 20041129
  Serious: No
  Sender: FDA-Public Use
  Company Number: US-BRISTOL-MYERS SQUIBB COMPANY-12281325

PATIENT
  Age: 53 Year
  Sex: Male

DRUGS (3)
  1. EXCEDRIN (MIGRAINE) [Suspect]
     Indication: HEADACHE
     Dosage: DOSE VARIES.  TAKEN SINCE HE WAS A TEENAGER.
  2. EXCEDRIN ES ASA FREE [Suspect]
     Dosage: DOSE VARIES.
  3. TYLENOL (CAPLET) [Concomitant]
     Indication: BACK PAIN

REACTIONS (1)
  - DRUG INEFFECTIVE [None]
